FAERS Safety Report 7775140-X (Version None)
Quarter: 2011Q3

REPORT INFORMATION
  Report Type: 
  Country: None (occurrence: None)
  Receive Date: 20110921
  Receipt Date: 20110908
  Transmission Date: 20111222
  Serious: Yes (Hospitalization, Other)
  Sender: FDA-Public Use
  Company Number: TPA2011A05664

PATIENT
  Age: 66 Year
  Sex: Female
  Weight: 128.368 kg

DRUGS (12)
  1. ALLOPURINOL (ALLOPRUINOL) [Concomitant]
  2. OCUVITE (ASCORBIC ACID, TOCOPHEROL, RETINOL) [Concomitant]
  3. ASPIRIN [Concomitant]
  4. TOPROL-XL [Concomitant]
  5. ACTOS [Suspect]
     Indication: TYPE 2 DIABETES MELLITUS
     Dosage: 30 MG, 1 IN 1 D, PER ORAL; 30 MG, 1/2 TABLET QD, PER ORAL
     Route: 048
     Dates: end: 20110808
  6. NORVASC [Concomitant]
  7. CRESTOR (ROSUVSTATIN) [Concomitant]
  8. VITAMIN B12 [Concomitant]
  9. METFORMIN (METFORMI8N) [Concomitant]
  10. LOSARTAN/HCTZ (HYDROCHLOROTHIAZIDE LOSARTAN POTASSIUM) [Concomitant]
  11. GLIMEPIRIDE [Concomitant]
  12. VITAMIN D [Concomitant]

REACTIONS (5)
  - BLOOD CREATININE INCREASED [None]
  - TREMOR [None]
  - WEIGHT DECREASED [None]
  - BLOOD GLUCOSE DECREASED [None]
  - URINARY TRACT INFECTION [None]
